FAERS Safety Report 18672718 (Version 1)
Quarter: 2020Q4

REPORT INFORMATION
  Report Type: Spontaneous
  Country: US (occurrence: US)
  Receive Date: 20201228
  Receipt Date: 20201228
  Transmission Date: 20210114
  Serious: No
  Sender: FDA-Public Use
  Company Number: US-TAKEDA-2020TUS060309

PATIENT
  Sex: Female
  Weight: 88.44 kg

DRUGS (18)
  1. ACETAMINOPHEN. [Concomitant]
     Active Substance: ACETAMINOPHEN
  2. VITAMIN B-6 [Concomitant]
     Active Substance: PYRIDOXINE
  3. ZINC. [Concomitant]
     Active Substance: ZINC
  4. GAMMAGARD [Suspect]
     Active Substance: HUMAN IMMUNOGLOBULIN G
     Indication: POLYNEUROPATHY
     Dosage: 35 GRAM, DAILY 3D EVERY MONTH
     Route: 042
     Dates: start: 20200330
  5. EPINEPHRINE. [Concomitant]
     Active Substance: EPINEPHRINE
  6. SODIUM CHLORIDE. [Concomitant]
     Active Substance: SODIUM CHLORIDE
  7. LUNESTA [Concomitant]
     Active Substance: ESZOPICLONE
  8. HEPARIN [Concomitant]
     Active Substance: HEPARIN SODIUM
  9. VITAMIN C ACID [Concomitant]
     Active Substance: ASCORBIC ACID
  10. VALSARTAN. [Concomitant]
     Active Substance: VALSARTAN
  11. VITAMIN D3 [Concomitant]
     Active Substance: CHOLECALCIFEROL
  12. SYNTHROID [Concomitant]
     Active Substance: LEVOTHYROXINE SODIUM
  13. DIPHENHYDRAMINE. [Concomitant]
     Active Substance: DIPHENHYDRAMINE
  14. CYANOCOBALAMIN. [Concomitant]
     Active Substance: CYANOCOBALAMIN
  15. CYMBALTA [Concomitant]
     Active Substance: DULOXETINE HYDROCHLORIDE
  16. HCTZ [Concomitant]
     Active Substance: HYDROCHLOROTHIAZIDE
  17. MAGNESIUM [Concomitant]
     Active Substance: MAGNESIUM
  18. SELENIUM [Concomitant]
     Active Substance: SELENIUM

REACTIONS (1)
  - Infusion site erythema [Unknown]
